FAERS Safety Report 4439275-1 (Version None)
Quarter: 2004Q3

REPORT INFORMATION
  Report Type: 
  Country: None (occurrence: None)
  Receive Date: 20040831
  Receipt Date: 20040820
  Transmission Date: 20050211
  Serious: Yes (Other)
  Sender: FDA-Public Use
  Company Number: 2004229808US

PATIENT
  Age: 49 Year
  Sex: Male
  Weight: 95.2 kg

DRUGS (2)
  1. CELEBREX [Suspect]
     Indication: INTERVERTEBRAL DISC DEGENERATION
     Dosage: 200 MG, QD, ORAL
     Route: 048
     Dates: start: 20040401, end: 20040101
  2. COZAAR [Concomitant]

REACTIONS (5)
  - CONFUSIONAL STATE [None]
  - DEPOSIT EYE [None]
  - FATIGUE [None]
  - LETHARGY [None]
  - UVEITIS [None]
